FAERS Safety Report 4583921-9 (Version None)
Quarter: 2005Q1

REPORT INFORMATION
  Report Type: 
  Country: None (occurrence: None)
  Receive Date: 20050125
  Receipt Date: 20041021
  Transmission Date: 20050727
  Serious: No
  Sender: FDA-Public Use
  Company Number: USA041081930

PATIENT
  Age: 68 Year
  Sex: Female

DRUGS (1)
  1. FORTEO [Suspect]
     Indication: OSTEOPOROSIS
     Dates: start: 20041015

REACTIONS (4)
  - ARTHRALGIA [None]
  - INJECTION SITE ERYTHEMA [None]
  - MOBILITY DECREASED [None]
  - PAIN IN EXTREMITY [None]
